FAERS Safety Report 26073981 (Version 1)
Quarter: 2025Q4

REPORT INFORMATION
  Report Type: Report from Study
  Country: US (occurrence: US)
  Receive Date: 20251121
  Receipt Date: 20251121
  Transmission Date: 20260117
  Serious: Yes (Other)
  Sender: ABBVIE
  Company Number: US-ABBVIE-6556981

PATIENT
  Age: 66 Year
  Sex: Male

DRUGS (2)
  1. RINVOQ [Suspect]
     Active Substance: UPADACITINIB
     Indication: Eczema
     Dosage: FORM STRENGTH: 15 MILLIGRAM EXTENDED RELEASE TABLET
     Route: 048
     Dates: start: 20250830, end: 20251030
  2. RINVOQ [Suspect]
     Active Substance: UPADACITINIB
     Indication: Eczema
     Dosage: FORM STRENGTH: 15 MILLIGRAM EXTENDED RELEASE TABLET
     Route: 048
     Dates: start: 20251104, end: 20251106

REACTIONS (3)
  - Wrist fracture [Unknown]
  - Dermatitis atopic [Unknown]
  - Fall [Unknown]

NARRATIVE: CASE EVENT DATE: 20250101
